FAERS Safety Report 8921843 (Version 1)
Quarter: 2012Q4

REPORT INFORMATION
  Report Type: 
  Country: FR (occurrence: FR)
  Receive Date: 20121121
  Receipt Date: 20121121
  Transmission Date: 20130627
  Serious: Yes (Hospitalization)
  Sender: FDA-Public Use
  Company Number: FR-ABBOTT-12P-056-1009616-00

PATIENT
  Age: 59 Year
  Sex: Female

DRUGS (16)
  1. DEPAKINE CHRONO [Suspect]
     Indication: EPILEPSY
     Dosage: 2 doasage form; extended release Daily
     Route: 048
     Dates: end: 201209
  2. MOXONIDINE [Suspect]
     Indication: HYPERTENSION
     Dosage: 0.25 milligram; Daily
     Route: 048
     Dates: end: 201209
  3. ENDOTELON [Suspect]
     Indication: PRODUCT USED FOR UNKNOWN INDICATION
     Dosage: 1 dosage form; Daily
     Route: 048
     Dates: end: 201209
  4. DITROPAN [Suspect]
     Indication: PRODUCT USED FOR UNKNOWN INDICATION
     Dosage: 0.5 dosage form Twice a day
     Route: 048
     Dates: start: 20120903, end: 20120907
  5. BELUSTINE [Suspect]
     Indication: OLIGODENDROGLIOMA
     Route: 048
     Dates: start: 20120725, end: 20120725
  6. VINCRISTINE [Suspect]
     Indication: OLIGODENDROGLIOMA
     Dosage: IV NOS
     Route: 042
     Dates: start: 20120802, end: 20120823
  7. NATULAN [Suspect]
     Indication: PRODUCT USED FOR UNKNOWN INDICATION
     Route: 048
     Dates: start: 20120802, end: 20120816
  8. XANAX [Suspect]
     Indication: PRODUCT USED FOR UNKNOWN INDICATION
     Dosage: 1 dosage form, Twice a day
     Route: 048
  9. EZETROL [Suspect]
     Indication: HYPERCHOLESTEROLAEMIA
     Dosage: 1 dosage form; Daily
     Route: 048
     Dates: end: 201209
  10. INEXIUM [Suspect]
     Indication: PRODUCT USED FOR UNKNOWN INDICATION
     Dosage: 1 dosage form; Daily
     Route: 048
     Dates: end: 201209
  11. MEDROL [Suspect]
     Dosage: 1 dosage form Twice a day
     Route: 048
     Dates: end: 201209
  12. ZANIDIP [Suspect]
     Dosage: 1 dosage form; Daily
     Route: 048
     Dates: end: 201209
  13. TEMESTA [Suspect]
     Indication: PRODUCT USED FOR UNKNOWN INDICATION
     Dosage: 1 dosage form; Daily
     Route: 048
     Dates: start: 201207, end: 201209
  14. TEMOZOLOMIDE [Concomitant]
     Indication: PRODUCT USED FOR UNKNOWN INDICATION
     Dates: end: 201206
  15. BEVACIZUMAB [Concomitant]
     Indication: PRODUCT USED FOR UNKNOWN INDICATION
     Dates: start: 20120625, end: 20120725
  16. IRINOTECAN [Concomitant]
     Indication: PRODUCT USED FOR UNKNOWN INDICATION
     Dates: start: 20120625, end: 20120725

REACTIONS (17)
  - Mixed liver injury [Not Recovered/Not Resolved]
  - Urinary retention [None]
  - VIIth nerve paralysis [None]
  - Hemiparesis [None]
  - Balance disorder [None]
  - Altered state of consciousness [None]
  - Blood sodium decreased [None]
  - Hyperparathyroidism [None]
  - Platelet count decreased [None]
  - Aspartate aminotransferase increased [None]
  - Alanine aminotransferase increased [None]
  - Blood alkaline phosphatase increased [None]
  - Gamma-glutamyltransferase increased [None]
  - Blood bilirubin increased [None]
  - Bilirubin conjugated increased [None]
  - Hyperammonaemia [None]
  - Hypercalcaemia [None]
